FAERS Safety Report 5356627-6 (Version None)
Quarter: 2007Q2

REPORT INFORMATION
  Report Type: 
  Country: None (occurrence: None)
  Receive Date: 20070614
  Receipt Date: 20070607
  Transmission Date: 20071010
  Serious: Yes (Hospitalization)
  Sender: FDA-Public Use
  Company Number: PHBS2007ES09669

PATIENT
  Age: 41 Year
  Sex: Male

DRUGS (4)
  1. VOLTAREN [Suspect]
     Indication: RIB FRACTURE
     Dosage: 50 MG/DAY
     Route: 048
     Dates: start: 20070328
  2. ACETAMINOPHEN [Suspect]
     Indication: RIB FRACTURE
     Dosage: 500 MG/DAY
     Route: 048
     Dates: start: 20070328
  3. MALTAX [Concomitant]
     Indication: MIGRAINE
     Dosage: 10 MG/DAY
     Route: 048
     Dates: start: 20040101, end: 20070401
  4. OMEPRAZOLE [Concomitant]
     Route: 048
     Dates: start: 20070328

REACTIONS (3)
  - CHEST PAIN [None]
  - MIGRAINE [None]
  - STERNAL FRACTURE [None]
